FAERS Safety Report 22704606 (Version 3)
Quarter: 2023Q4

REPORT INFORMATION
  Report Type: Report from Study
  Country: US (occurrence: US)
  Receive Date: 20230714
  Receipt Date: 20231106
  Transmission Date: 20240110
  Serious: Yes (Other)
  Sender: FDA-Public Use
  Company Number: US-JAZZ PHARMACEUTICALS-2023-US-014875

PATIENT
  Sex: Female

DRUGS (4)
  1. EPIDIOLEX [Suspect]
     Active Substance: CANNABIDIOL
     Indication: Partial seizures
     Dosage: 1.5 MILLILITER IN THE MORNING
     Route: 048
     Dates: start: 202306
  2. EPIDIOLEX [Suspect]
     Active Substance: CANNABIDIOL
     Indication: Focal dyscognitive seizures
     Dosage: 3 MILLILITER IN THE MORNING AND AT BEDTIME
     Route: 048
     Dates: start: 202306
  3. EPIDIOLEX [Suspect]
     Active Substance: CANNABIDIOL
     Indication: Epilepsy
     Dosage: 3 MILLILITER, BID
     Route: 048
     Dates: start: 202306
  4. EPIDIOLEX [Suspect]
     Active Substance: CANNABIDIOL
     Indication: Lennox-Gastaut syndrome

REACTIONS (7)
  - Urinary retention [Not Recovered/Not Resolved]
  - Gastric ulcer [Unknown]
  - Seizure [Unknown]
  - Blood thyroid stimulating hormone increased [Not Recovered/Not Resolved]
  - Thyroxine decreased [Unknown]
  - Rash [Unknown]
  - Insomnia [Unknown]
